FAERS Safety Report 6025361-1 (Version None)
Quarter: 2008Q4

REPORT INFORMATION
  Report Type: 
  Country: None (occurrence: None)
  Receive Date: 20081222
  Receipt Date: 20081110
  Transmission Date: 20090506
  Serious: No
  Sender: FDA-Public Use
  Company Number: ALL1-2008-03296

PATIENT
  Sex: Male

DRUGS (2)
  1. VYVANSE [Suspect]
     Dosage: 70 MG, ORAL
     Route: 048
     Dates: start: 20081110
  2. ALBUTEROL /00139501/ (SALBUTAMOL) [Concomitant]

REACTIONS (2)
  - ANXIETY [None]
  - DYSPNOEA [None]
